FAERS Safety Report 5541553-X (Version None)
Quarter: 2007Q4

REPORT INFORMATION
  Report Type: 
  Country: None (occurrence: None)
  Receive Date: 20071210
  Receipt Date: 20071129
  Transmission Date: 20080405
  Serious: Yes (Other)
  Sender: FDA-Public Use
  Company Number: US-JNJFOC-20071101417

PATIENT
  Sex: Female

DRUGS (4)
  1. REMICADE [Suspect]
     Route: 042
     Dates: start: 20060101, end: 20070801
  2. REMICADE [Suspect]
     Indication: CROHN'S DISEASE
     Route: 042
     Dates: start: 20060101, end: 20070801
  3. ENTOCORT EC [Concomitant]
  4. PENTASA [Concomitant]

REACTIONS (3)
  - LUPUS-LIKE SYNDROME [None]
  - SINUSITIS [None]
  - UPPER RESPIRATORY TRACT INFECTION [None]
